FAERS Safety Report 8130388-X (Version None)
Quarter: 2012Q1

REPORT INFORMATION
  Report Type: 
  Country: None (occurrence: None)
  Receive Date: 20120210
  Receipt Date: 20120130
  Transmission Date: 20120608
  Serious: Yes (Other)
  Sender: FDA-Public Use
  Company Number: CHPA2012US002429

PATIENT
  Sex: Female

DRUGS (1)
  1. EXCEDRIN MENSTRUAL COMPLETE EXPRESS GEL CAPLETS [Suspect]
     Dosage: UNK, UNK
     Route: 048

REACTIONS (4)
  - COAGULOPATHY [None]
  - ABORTION SPONTANEOUS [None]
  - HYPERTENSION [None]
  - MATERNAL EXPOSURE DURING PREGNANCY [None]
